FAERS Safety Report 20074240 (Version 3)
Quarter: 2022Q1

REPORT INFORMATION
  Report Type: Report from Study
  Country: AU (occurrence: AU)
  Receive Date: 20211116
  Receipt Date: 20220224
  Transmission Date: 20220423
  Serious: Yes (Hospitalization, Other)
  Sender: FDA-Public Use
  Company Number: AU-BRISTOL-MYERS SQUIBB COMPANY-BMS-2021-118709

PATIENT
  Age: 50 Year
  Sex: Female

DRUGS (2)
  1. NIVOLUMAB [Suspect]
     Active Substance: NIVOLUMAB
     Indication: Malignant melanoma
     Dosage: 480 MILLIGRAM, MONTHLY
     Route: 042
  2. NIVOLUMAB [Suspect]
     Active Substance: NIVOLUMAB
     Dosage: 480 MILLIGRAM,Q28 DAYS
     Route: 042

REACTIONS (4)
  - Pyrexia [Recovering/Resolving]
  - Liver function test [Unknown]
  - Uterine disorder [Recovering/Resolving]
  - Postoperative hypertension [Recovering/Resolving]

NARRATIVE: CASE EVENT DATE: 20211107
